FAERS Safety Report 4939116-X (Version None)
Quarter: 2006Q1

REPORT INFORMATION
  Report Type: 
  Country: None (occurrence: None)
  Receive Date: 20060306
  Receipt Date: 20060224
  Transmission Date: 20060701
  Serious: Yes (Hospitalization, Other)
  Sender: FDA-Public Use
  Company Number: 2006-02-1543

PATIENT
  Sex: Female

DRUGS (2)
  1. TEMODAR [Suspect]
     Indication: GLIOBLASTOMA
     Dosage: ORAL
     Route: 048
     Dates: end: 20060201
  2. COUMADIN [Suspect]
     Indication: PROPHYLAXIS
     Dates: end: 20060201

REACTIONS (5)
  - DEEP VEIN THROMBOSIS [None]
  - FALL [None]
  - PANCYTOPENIA [None]
  - PULMONARY EMBOLISM [None]
  - SUBARACHNOID HAEMORRHAGE [None]
